FAERS Safety Report 5566620-6 (Version None)
Quarter: 2007Q4

REPORT INFORMATION
  Report Type: 
  Country: None (occurrence: None)
  Receive Date: 20071218
  Receipt Date: 20071218
  Transmission Date: 20080405
  Serious: No
  Sender: FDA-Public Use
  Company Number: None

PATIENT
  Age: 63 Year
  Sex: Female
  Weight: 80.7403 kg

DRUGS (8)
  1. CLONAZEPAM [Suspect]
     Dosage: OVERDOSE PO
     Route: 048
  2. LISINOPRIL [Concomitant]
  3. METOPROLOL [Concomitant]
  4. TRAZODONE HCL [Concomitant]
  5. FAMOTIDINE [Concomitant]
  6. LIPITOR [Concomitant]
  7. CELEXA [Concomitant]
  8. CLONAZEPAM [Concomitant]

REACTIONS (5)
  - BLOOD CREATININE INCREASED [None]
  - CONFUSIONAL STATE [None]
  - EATING DISORDER [None]
  - HYPOTENSION [None]
  - OVERDOSE [None]
